FAERS Safety Report 11128897 (Version 2)
Quarter: 2015Q2

REPORT INFORMATION
  Report Type: Spontaneous
  Country: UA (occurrence: UA)
  Receive Date: 20150521
  Receipt Date: 20150612
  Transmission Date: 20150821
  Serious: Yes (Other)
  Sender: FDA-Public Use
  Company Number: PHHY2015UA058022

PATIENT
  Age: 54 Year
  Sex: Male

DRUGS (1)
  1. TASIGNA [Suspect]
     Active Substance: NILOTINIB
     Indication: CHRONIC MYELOID LEUKAEMIA
     Dosage: 400 MG, BID
     Route: 048
     Dates: start: 20130612

REACTIONS (5)
  - Chronic hepatitis C [Unknown]
  - Fatigue [Unknown]
  - Hepatic enzyme increased [Not Recovered/Not Resolved]
  - Hepatitis C [Unknown]
  - Chronic hepatitis B [Unknown]
